FAERS Safety Report 8236033-7 (Version None)
Quarter: 2012Q1

REPORT INFORMATION
  Report Type: 
  Country: None (occurrence: None)
  Receive Date: 20120326
  Receipt Date: 20120320
  Transmission Date: 20120608
  Serious: Yes (Other)
  Sender: FDA-Public Use
  Company Number: US-AMGEN-USASP2011051210

PATIENT
  Age: 9 Year
  Sex: Female
  Weight: 42.4 kg

DRUGS (6)
  1. MULTI-VITAMIN [Concomitant]
     Dosage: UNK
  2. ENBREL [Suspect]
     Indication: CHRONIC RECURRENT MULTIFOCAL OSTEOMYELITIS
     Dosage: 35 MG, QWK
     Route: 058
     Dates: start: 20110811
  3. NAPROXEN [Concomitant]
     Dosage: UNK
  4. PREDNISONE TAB [Concomitant]
     Dosage: 5 MG, UNK
     Dates: start: 20110930
  5. PREDNISONE TAB [Concomitant]
     Dosage: 15 MG, UNK
     Dates: end: 20110822
  6. PREDNISONE TAB [Concomitant]
     Dosage: 10 MG, UNK
     Dates: start: 20110822, end: 20110930

REACTIONS (9)
  - SWELLING FACE [None]
  - URTICARIA [None]
  - LIP SWELLING [None]
  - EYE SWELLING [None]
  - OSTEOMYELITIS [None]
  - VIRAL INFECTION [None]
  - OSTEOMYELITIS CHRONIC [None]
  - INJECTION SITE PAIN [None]
  - PAIN [None]
